FAERS Safety Report 11682650 (Version 2)
Quarter: 2015Q4

REPORT INFORMATION
  Report Type: Spontaneous
  Country: GB (occurrence: GB)
  Receive Date: 20151029
  Receipt Date: 20151103
  Transmission Date: 20160304
  Serious: Yes (Hospitalization)
  Sender: FDA-Public Use
  Company Number: GB-SA-2015SA170219

PATIENT
  Age: 67 Year
  Sex: Male

DRUGS (1)
  1. DRONEDARONE [Suspect]
     Active Substance: DRONEDARONE
     Indication: ATRIAL FIBRILLATION
     Route: 065

REACTIONS (12)
  - Pyrexia [Recovering/Resolving]
  - Hypoxia [Recovering/Resolving]
  - Respiratory failure [Recovering/Resolving]
  - C-reactive protein [Recovering/Resolving]
  - Organising pneumonia [Recovering/Resolving]
  - Lung consolidation [Recovering/Resolving]
  - White blood cell count increased [Recovering/Resolving]
  - PO2 decreased [Recovering/Resolving]
  - Oxygen saturation decreased [Recovering/Resolving]
  - Cough [Recovering/Resolving]
  - Dyspnoea [Recovering/Resolving]
  - Rales [Recovering/Resolving]
